FAERS Safety Report 9922106 (Version 3)
Quarter: 2014Q2

REPORT INFORMATION
  Report Type: Spontaneous
  Country: US (occurrence: US)
  Receive Date: 20140225
  Receipt Date: 20140409
  Transmission Date: 20141212
  Serious: Yes (Death)
  Sender: FDA-Public Use
  Company Number: US-ALLERGAN-1403418US

PATIENT
  Age: 82 Year
  Sex: Male
  Weight: 68.27 kg

DRUGS (1)
  1. BOTOX [Suspect]
     Indication: MUSCLE SPASTICITY
     Dosage: UNK UNK, SINGLE
     Dates: start: 20131007, end: 20131007

REACTIONS (1)
  - Death [Fatal]
